FAERS Safety Report 5794038-X (Version None)
Quarter: 2008Q2

REPORT INFORMATION
  Report Type: 
  Country: None (occurrence: None)
  Receive Date: 20080627
  Receipt Date: 20080617
  Transmission Date: 20081010
  Serious: Yes (Other)
  Sender: FDA-Public Use
  Company Number: US-PFIZER INC-2008043157

PATIENT
  Sex: Female
  Weight: 89.8 kg

DRUGS (14)
  1. LYRICA [Suspect]
     Indication: NECK PAIN
     Route: 048
     Dates: start: 20080505, end: 20080501
  2. LYRICA [Suspect]
     Indication: HYPOAESTHESIA
  3. LYRICA [Suspect]
     Indication: PARAESTHESIA
  4. LYRICA [Suspect]
     Indication: NEURITIS
  5. LYRICA [Suspect]
     Indication: RADICULITIS CERVICAL
  6. NEXIUM [Concomitant]
  7. SYNTHROID [Concomitant]
  8. ESTRADIOL [Concomitant]
  9. CELEBREX [Concomitant]
  10. LISINOPRIL AND HYDROCHLOROTHIAZIDE [Concomitant]
  11. WELLBUTRIN [Concomitant]
  12. LORTAB [Concomitant]
  13. ACETAMINOPHEN W/ CODEINE [Concomitant]
  14. MULTI-VITAMINS [Concomitant]

REACTIONS (5)
  - LIP SWELLING [None]
  - NASAL OEDEMA [None]
  - SWELLING [None]
  - SWELLING FACE [None]
  - URTICARIA [None]
